FAERS Safety Report 7625776-1 (Version None)
Quarter: 2011Q3

REPORT INFORMATION
  Report Type: 
  Country: None (occurrence: None)
  Receive Date: 20110701
  Receipt Date: 20100507
  Transmission Date: 20111222
  Serious: Yes (Other)
  Sender: FDA-Public Use
  Company Number: 7004164

PATIENT
  Age: 41 Year
  Sex: Female

DRUGS (2)
  1. REBIF [Suspect]
     Indication: MULTIPLE SCLEROSIS
     Dosage: 44 MCG, 3 IN 1 WK, SUBCUTANEOUS
     Route: 058
     Dates: start: 20081201
  2. AMANTADINE HCL [Concomitant]

REACTIONS (4)
  - SPLENIC ARTERY ANEURYSM [None]
  - NEPHROLITHIASIS [None]
  - DEPRESSION [None]
  - VOMITING [None]
